FAERS Safety Report 6057661-3 (Version None)
Quarter: 2009Q1

REPORT INFORMATION
  Report Type: 
  Country: None (occurrence: None)
  Receive Date: 20090129
  Receipt Date: 20090122
  Transmission Date: 20090719
  Serious: Yes (Death, Life-Threatening, Hospitalization)
  Sender: FDA-Public Use
  Company Number: DE-AVENTIS-200910094DE

PATIENT
  Age: 57 Year
  Sex: Male
  Weight: 73.8 kg

DRUGS (7)
  1. DOCETAXEL [Suspect]
     Route: 042
     Dates: start: 20081223, end: 20081223
  2. FLUOROURACIL [Suspect]
     Dosage: DOSE: 7150 TOTAL FOR 6 DAYS
     Route: 042
     Dates: start: 20081223, end: 20081228
  3. CISPLATIN [Suspect]
     Route: 042
     Dates: start: 20081223, end: 20081223
  4. CEFUROXIME [Suspect]
     Indication: PROPHYLAXIS
     Route: 048
     Dates: start: 20081228, end: 20081230
  5. ATACAND HCT [Concomitant]
     Indication: HYPERTENSION
     Dosage: DOSE: NOT REPORTED
  6. AMLODIPIN RETARD [Concomitant]
     Indication: HYPERTENSION
     Dosage: DOSE: NOT REPORTED
  7. DEXAMETHASONE [Concomitant]
     Indication: PROPHYLAXIS
     Route: 042
     Dates: start: 20081222, end: 20081222

REACTIONS (3)
  - DIARRHOEA [None]
  - LEUKOPENIA [None]
  - RENAL FAILURE [None]
